FAERS Safety Report 6964434-3 (Version None)
Quarter: 2010Q3

REPORT INFORMATION
  Report Type: 
  Country: None (occurrence: None)
  Receive Date: 20100903
  Receipt Date: 20100825
  Transmission Date: 20110219
  Serious: Yes (Other)
  Sender: FDA-Public Use
  Company Number: US-PFIZER INC-2010107031

PATIENT
  Sex: Male
  Weight: 81.633 kg

DRUGS (2)
  1. LYRICA [Suspect]
     Indication: POST-TRAUMATIC PAIN
     Dosage: 150 MG ONCE OR TWICE A DAY
     Route: 048
  2. IMOVANE [Suspect]
     Indication: SLEEP DISORDER
     Dosage: UNK
     Route: 048

REACTIONS (3)
  - DRUG DEPENDENCE [None]
  - INTENTIONAL DRUG MISUSE [None]
  - SEDATION [None]
